FAERS Safety Report 6329287-5 (Version None)
Quarter: 2009Q3

REPORT INFORMATION
  Report Type: 
  Country: None (occurrence: None)
  Receive Date: 20090824
  Receipt Date: 20090824
  Transmission Date: 20100115
  Serious: Yes (Other)
  Sender: FDA-Public Use
  Company Number: None

PATIENT
  Sex: Male
  Weight: 29.4838 kg

DRUGS (1)
  1. RISPERDAL [Suspect]
     Indication: AGGRESSION
     Dosage: 0.5MG AT NIGHT PO; 0.25MG IN MORNING PO
     Route: 048
     Dates: start: 20090810, end: 20090823

REACTIONS (2)
  - EPISTAXIS [None]
  - HAEMOPTYSIS [None]
